FAERS Safety Report 22143393 (Version 1)
Quarter: 2023Q1

REPORT INFORMATION
  Report Type: Spontaneous
  Country: US (occurrence: US)
  Receive Date: 20230327
  Receipt Date: 20230327
  Transmission Date: 20230417
  Serious: Yes (Death, Other)
  Sender: FDA-Public Use
  Company Number: US-MALLINCKRODT-MNK202300565

PATIENT
  Age: 72 Year
  Sex: Male

DRUGS (1)
  1. NITRIC OXIDE [Suspect]
     Active Substance: NITRIC OXIDE
     Indication: Product used for unknown indication
     Dosage: UNKNOWN
     Route: 055

REACTIONS (3)
  - Death [Fatal]
  - Condition aggravated [Unknown]
  - Product use issue [Unknown]
